FAERS Safety Report 21188108 (Version 1)
Quarter: 2022Q3

REPORT INFORMATION
  Report Type: Spontaneous
  Country: US (occurrence: None)
  Receive Date: 20220809
  Receipt Date: 20220809
  Transmission Date: 20221027
  Serious: Yes (Hospitalization, Other)
  Sender: FDA-Public Use
  Company Number: US-Unichem Pharmaceuticals (USA) Inc-UCM202207-000720

PATIENT
  Sex: Female

DRUGS (4)
  1. CHLORTHALIDONE [Suspect]
     Active Substance: CHLORTHALIDONE
     Indication: Product used for unknown indication
     Route: 048
  2. LINEZOLID [Concomitant]
     Active Substance: LINEZOLID
     Indication: Skin infection
     Dosage: UNKNOWN
  3. MEROPENEM [Concomitant]
     Active Substance: MEROPENEM
     Indication: Skin infection
     Dosage: UNKNOWN
  4. ERGOCALCIFEROL [Concomitant]
     Active Substance: ERGOCALCIFEROL
     Indication: Product used for unknown indication

REACTIONS (1)
  - Calciphylaxis [Recovering/Resolving]
